FAERS Safety Report 9304791 (Version 1)
Quarter: 2013Q2

REPORT INFORMATION
  Report Type: Spontaneous
  Country: US (occurrence: None)
  Receive Date: 20130521
  Receipt Date: 20130521
  Transmission Date: 20140414
  Serious: Yes (Hospitalization)
  Sender: FDA-Public Use
  Company Number: None

PATIENT
  Age: 65 Year
  Sex: Male
  Weight: 90.1 kg

DRUGS (2)
  1. BUMETANIDE [Suspect]
     Route: 048
     Dates: start: 20121217, end: 20130207
  2. METOLAZONE [Suspect]
     Route: 048
     Dates: start: 20130201, end: 20130207

REACTIONS (2)
  - Renal failure acute [None]
  - Mental disorder [None]
